FAERS Safety Report 11011163 (Version 4)
Quarter: 2015Q3

REPORT INFORMATION
  Report Type: Report from Study
  Country: US (occurrence: US)
  Receive Date: 20150410
  Receipt Date: 20150710
  Transmission Date: 20151125
  Serious: Yes (Hospitalization)
  Sender: FDA-Public Use
  Company Number: US-GILEAD-2015-0147679

PATIENT
  Age: 50 Year
  Sex: Female

DRUGS (1)
  1. IDELALISIB [Suspect]
     Active Substance: IDELALISIB
     Indication: NON-HODGKIN^S LYMPHOMA
     Dosage: 150 MG, BID
     Route: 048
     Dates: start: 20150309, end: 20150330

REACTIONS (5)
  - Diarrhoea [Unknown]
  - Renal impairment [Recovered/Resolved]
  - Dehydration [Unknown]
  - Disease progression [Not Recovered/Not Resolved]
  - Gastroenteritis viral [Unknown]
